FAERS Safety Report 10178029 (Version 2)
Quarter: 2015Q3

REPORT INFORMATION
  Report Type: Spontaneous
  Country: DK (occurrence: DK)
  Receive Date: 20140517
  Receipt Date: 20150825
  Transmission Date: 20151125
  Serious: Yes (Disabling, Other)
  Sender: FDA-Public Use
  Company Number: DK-ABBVIE-14K-044-1237846-00

PATIENT
  Age: 48 Year
  Sex: Male

DRUGS (2)
  1. PONDOCILLIN [Interacting]
     Active Substance: PIVAMPICILLIN HYDROCHLORIDE
     Indication: PNEUMONIA
     Route: 048
     Dates: start: 20131227
  2. DEPAKENE [Suspect]
     Active Substance: VALPROIC ACID
     Indication: EPILEPSY
     Dosage: EXTENDED RELEASE, AT BEDTIME
     Route: 048
     Dates: start: 200306

REACTIONS (7)
  - Encephalopathy [Recovered/Resolved]
  - Headache [Recovered/Resolved]
  - Confusional state [Recovered/Resolved]
  - Dysarthria [Recovered/Resolved]
  - Altered state of consciousness [Recovered/Resolved]
  - Drug interaction [Unknown]
  - Rash [Recovered/Resolved]

NARRATIVE: CASE EVENT DATE: 20131228
